FAERS Safety Report 5878848-6 (Version None)
Quarter: 2008Q3

REPORT INFORMATION
  Report Type: 
  Country: None (occurrence: None)
  Receive Date: 20080910
  Receipt Date: 20080825
  Transmission Date: 20090109
  Serious: Yes (Other)
  Sender: FDA-Public Use
  Company Number: 2008S1015569

PATIENT
  Age: 18 Year
  Sex: Female
  Weight: 48.5349 kg

DRUGS (5)
  1. AMNESTEEM [Suspect]
     Dosage: DAILY; ORAL, 40 MG, TWICE A DAY; ORAL
     Route: 048
     Dates: start: 20060601, end: 20061117
  2. AMNESTEEM [Suspect]
     Dosage: DAILY; ORAL, 40 MG, TWICE A DAY; ORAL
     Route: 048
     Dates: start: 20080501, end: 20080815
  3. AMNESTEEM [Suspect]
     Dosage: DAILY; ORAL, 40 MG, TWICE A DAY; ORAL
     Route: 048
     Dates: start: 20080821
  4. DEPO-PROVERA [Concomitant]
  5. ORAL CONTRACEPTIVE NOS [Concomitant]

REACTIONS (4)
  - ABORTION SPONTANEOUS [None]
  - DRUG EXPOSURE DURING PREGNANCY [None]
  - PREGNANCY ON CONTRACEPTIVE [None]
  - TREATMENT NONCOMPLIANCE [None]
